FAERS Safety Report 5005896-0 (Version None)
Quarter: 2006Q2

REPORT INFORMATION
  Report Type: 
  Country: None (occurrence: None)
  Receive Date: 20060517
  Receipt Date: 20060517
  Transmission Date: 20061013
  Serious: Yes (Hospitalization)
  Sender: FDA-Public Use
  Company Number: None

PATIENT
  Age: 77 Year
  Sex: Male

DRUGS (8)
  1. FUROSEMIDE [Suspect]
     Indication: HYPERTENSION
     Dosage: 40 MG BID
     Dates: start: 20001101
  2. FELODIPINE [Concomitant]
  3. RANITIDINE [Concomitant]
  4. GEMFIBROZIL [Concomitant]
  5. METOPROLOL TARTRATE [Concomitant]
  6. LISINOPRIL [Concomitant]
  7. HUMULIN 70/30 [Concomitant]
  8. CA / VIT D [Concomitant]

REACTIONS (2)
  - POLYURIA [None]
  - RENAL FAILURE ACUTE [None]
